FAERS Safety Report 4396274-6 (Version None)
Quarter: 2004Q3

REPORT INFORMATION
  Report Type: 
  Country: None (occurrence: None)
  Receive Date: 20040709
  Receipt Date: 20040623
  Transmission Date: 20050211
  Serious: Yes (Death, Hospitalization, Other)
  Sender: FDA-Public Use
  Company Number: 2004-DE-03596DE

PATIENT
  Age: 78 Year
  Sex: Male

DRUGS (1)
  1. SPIRIVA [Suspect]
     Indication: CHRONIC OBSTRUCTIVE AIRWAYS DISEASE
     Dosage: 18 MCG, 1 IN 1 D)
     Route: 055
     Dates: start: 20040426, end: 20040506

REACTIONS (4)
  - LUNG DISORDER [None]
  - MUCOSAL EROSION [None]
  - ORAL PAIN [None]
  - PHARYNGOLARYNGEAL PAIN [None]
